FAERS Safety Report 8439440 (Version 2)
Quarter: 2012Q4

REPORT INFORMATION
  Report Type: 
  Country: MX (occurrence: MX)
  Receive Date: 20120302
  Receipt Date: 20120925
  Transmission Date: 20130627
  Serious: Yes (Death, Other)
  Sender: FDA-Public Use
  Company Number: PHHY2012MX018038

PATIENT
  Age: 84 Year
  Sex: Male

DRUGS (1)
  1. DIOVAN [Suspect]
     Indication: HYPERTENSION
     Dosage: 1 DF (320 mg), daily
     Dates: start: 201201, end: 201202

REACTIONS (2)
  - Death [Fatal]
  - Renal disorder [Not Recovered/Not Resolved]
